FAERS Safety Report 9264792 (Version 1)
Quarter: 2013Q2

REPORT INFORMATION
  Report Type: Spontaneous
  Country: US (occurrence: None)
  Receive Date: 20130429
  Receipt Date: 20130429
  Transmission Date: 20140414
  Serious: Yes (Other)
  Sender: FDA-Public Use
  Company Number: None

PATIENT
  Age: 44 Year
  Sex: Female
  Weight: 104.33 kg

DRUGS (9)
  1. CLOZAPINE [Suspect]
     Indication: SCHIZOPHRENIA
     Dosage: 250 MG HS PO
     Route: 048
  2. CLOZAPINE [Suspect]
  3. LAMICTAL [Concomitant]
  4. TEGRETAL [Concomitant]
  5. ENDERAL [Concomitant]
  6. ABILIFY [Concomitant]
  7. VASOTEC [Concomitant]
  8. NORETHINDRONE ACE [Concomitant]
  9. SYNTHROID [Concomitant]

REACTIONS (12)
  - Convulsion [None]
  - General physical health deterioration [None]
  - Arthralgia [None]
  - Pyrexia [None]
  - Incontinence [None]
  - Arthralgia [None]
  - Hyperhidrosis [None]
  - Chills [None]
  - Diarrhoea [None]
  - Rhinorrhoea [None]
  - Weight decreased [None]
  - Toxicity to various agents [None]
